FAERS Safety Report 4677288-5 (Version None)
Quarter: 2005Q2

REPORT INFORMATION
  Report Type: 
  Country: None (occurrence: None)
  Receive Date: 20050526
  Receipt Date: 20050526
  Transmission Date: 20051028
  Serious: Yes (Life-Threatening, Hospitalization)
  Sender: FDA-Public Use
  Company Number: None

PATIENT
  Age: 44 Year
  Sex: Male
  Weight: 61.7 kg

DRUGS (1)
  1. ZIDOVUDINE [Suspect]
     Indication: HIV INFECTION
     Dosage: 300 MG PO BID
     Route: 048
     Dates: start: 20050126, end: 20050407

REACTIONS (7)
  - AGRANULOCYTOSIS [None]
  - FEBRILE NEUTROPENIA [None]
  - MYALGIA [None]
  - NIGHT SWEATS [None]
  - PANCYTOPENIA [None]
  - PYREXIA [None]
  - REFUSAL OF TREATMENT BY PATIENT [None]
